FAERS Safety Report 5208312-9 (Version None)
Quarter: 2007Q1

REPORT INFORMATION
  Report Type: 
  Country: None (occurrence: None)
  Receive Date: 20070110
  Receipt Date: 20070110
  Transmission Date: 20070707
  Serious: Yes (Other)
  Sender: FDA-Public Use
  Company Number: None

PATIENT
  Sex: Female
  Weight: 73.0291 kg

DRUGS (2)
  1. METHADONE HCL [Suspect]
     Indication: FIBROMYALGIA
     Dosage: 40 MG BID PO
     Route: 048
     Dates: start: 20060511
  2. MORPHINE SULFATE [Suspect]
     Dosage: 15 MG BID PO
     Route: 048
     Dates: start: 20060811

REACTIONS (2)
  - DEPRESSION [None]
  - INSOMNIA [None]
